FAERS Safety Report 24976313 (Version 1)
Quarter: 2025Q1

REPORT INFORMATION
  Report Type: Report from Study
  Country: US (occurrence: US)
  Receive Date: 20250217
  Receipt Date: 20250217
  Transmission Date: 20250409
  Serious: Yes (Other)
  Sender: ROCHE
  Company Number: US-ROCHE-10000203988

PATIENT
  Age: 33 Year
  Sex: Female

DRUGS (7)
  1. PULMOZYME [Suspect]
     Active Substance: DORNASE ALFA
     Indication: Chronic respiratory failure
     Dosage: INHALE THE CONTENTS OF ONE VIAL VIA NEBULIZATION TWICE DAILY
     Route: 065
  2. PULMOZYME [Suspect]
     Active Substance: DORNASE ALFA
     Indication: Brain injury
  3. PULMOZYME [Suspect]
     Active Substance: DORNASE ALFA
     Indication: Tracheostomy
  4. PULMOZYME [Suspect]
     Active Substance: DORNASE ALFA
     Indication: Chronic respiratory failure
  5. PULMOZYME [Suspect]
     Active Substance: DORNASE ALFA
     Indication: Infective pulmonary exacerbation of cystic fibrosis
  6. PULMOZYME [Suspect]
     Active Substance: DORNASE ALFA
     Indication: Tracheostomy
  7. PULMOZYME [Suspect]
     Active Substance: DORNASE ALFA
     Indication: Hypoxia

REACTIONS (1)
  - Brain injury [Unknown]
